FAERS Safety Report 4295291-4 (Version None)
Quarter: 2004Q1

REPORT INFORMATION
  Report Type: 
  Country: None (occurrence: None)
  Receive Date: 20040216
  Receipt Date: 20030516
  Transmission Date: 20041129
  Serious: No
  Sender: FDA-Public Use
  Company Number: US-GLAXOSMITHKLINE-A0408889A

PATIENT
  Age: 53 Year
  Sex: Male

DRUGS (2)
  1. LAMICTAL [Suspect]
     Route: 048
  2. DAYPRO [Suspect]
     Route: 065
     Dates: start: 20030506

REACTIONS (1)
  - ARTHRALGIA [None]
